FAERS Safety Report 4563762-9 (Version None)
Quarter: 2005Q1

REPORT INFORMATION
  Report Type: 
  Country: None (occurrence: None)
  Receive Date: 20050128
  Receipt Date: 20041217
  Transmission Date: 20050727
  Serious: Yes (Other)
  Sender: FDA-Public Use
  Company Number: GB-BRISTOL-MYERS SQUIBB COMPANY-12805503

PATIENT
  Age: 16 Year
  Sex: Male
  Weight: 55 kg

DRUGS (8)
  1. CYCLOPHOSPHAMIDE [Suspect]
     Indication: NON-HODGKIN'S LYMPHOMA
     Dates: start: 19870101, end: 19870101
  2. METHOTREXATE [Suspect]
     Indication: NON-HODGKIN'S LYMPHOMA
     Route: 037
     Dates: start: 19870101, end: 19870101
  3. DOXORUBICIN [Suspect]
     Indication: NON-HODGKIN'S LYMPHOMA
     Route: 042
     Dates: start: 19870101, end: 19870101
  4. CYTARABINE [Suspect]
     Indication: NON-HODGKIN'S LYMPHOMA
     Route: 042
     Dates: start: 19870101, end: 19870101
  5. ASPARAGINASE [Suspect]
     Indication: NON-HODGKIN'S LYMPHOMA
     Route: 042
     Dates: start: 19870101, end: 19870101
  6. MERCAPTOPURINE [Suspect]
     Indication: NON-HODGKIN'S LYMPHOMA
     Route: 042
     Dates: start: 19870101, end: 19870101
  7. ONCOVIN [Suspect]
     Indication: NON-HODGKIN'S LYMPHOMA
     Route: 042
     Dates: start: 19870101, end: 19870101
  8. PREDNISOLONE [Suspect]
     Indication: NON-HODGKIN'S LYMPHOMA
     Route: 037
     Dates: start: 19870101, end: 19870101

REACTIONS (2)
  - CHORIORETINAL ATROPHY [None]
  - RETINAL DYSTROPHY [None]
